FAERS Safety Report 15683118 (Version 2)
Quarter: 2018Q4

REPORT INFORMATION
  Report Type: Report from Study
  Country: CA (occurrence: CA)
  Receive Date: 20181204
  Receipt Date: 20181206
  Transmission Date: 20190205
  Serious: Yes (Hospitalization)
  Sender: FDA-Public Use
  Company Number: CA-TOLMAR, INC.-2018CA011945

PATIENT

DRUGS (5)
  1. TEVA CANDESARTAN [Concomitant]
  2. ASA [Concomitant]
     Active Substance: ASPIRIN
  3. ELIGARD [Suspect]
     Active Substance: LEUPROLIDE ACETATE
     Indication: PROSTATE CANCER
     Dosage: 30 MG, EVERY 4 MONTHS
     Route: 058
     Dates: start: 20151027
  4. CALCIUM [Concomitant]
     Active Substance: CALCIUM
  5. ALENDRONATE [Concomitant]
     Active Substance: ALENDRONATE SODIUM

REACTIONS (4)
  - Head injury [Unknown]
  - Fall [Unknown]
  - Skin laceration [Unknown]
  - Movement disorder [Unknown]

NARRATIVE: CASE EVENT DATE: 20181122
